FAERS Safety Report 22044657 (Version 1)
Quarter: 2023Q1

REPORT INFORMATION
  Report Type: Spontaneous
  Country: US (occurrence: US)
  Receive Date: 20230228
  Receipt Date: 20230228
  Transmission Date: 20230418
  Serious: Yes (Death, Other)
  Sender: FDA-Public Use
  Company Number: US-BRISTOL-MYERS SQUIBB COMPANY-2023-028215

PATIENT
  Age: 80 Year
  Sex: Female
  Weight: 60.33 kg

DRUGS (1)
  1. LENALIDOMIDE [Suspect]
     Active Substance: LENALIDOMIDE
     Indication: Chronic lymphocytic leukaemia
     Dosage: 1 QD 21 D ON 7 D OFF
     Route: 048

REACTIONS (2)
  - Chronic lymphocytic leukaemia refractory [Fatal]
  - Off label use [Unknown]
